FAERS Safety Report 15608667 (Version 1)
Quarter: 2018Q4

REPORT INFORMATION
  Report Type: Spontaneous
  Country: US (occurrence: US)
  Receive Date: 20181112
  Receipt Date: 20181112
  Transmission Date: 20190205
  Serious: No
  Sender: FDA-Public Use
  Company Number: US-SA-2018SA302096

PATIENT
  Age: 33 Year
  Sex: Female
  Weight: 66.7 kg

DRUGS (3)
  1. ASPIRIN BAYER [Concomitant]
     Active Substance: ASPIRIN
     Indication: PRE-ECLAMPSIA
     Dosage: 81 MG
     Route: 048
     Dates: start: 20180608
  2. FABRAZYME [Suspect]
     Active Substance: AGALSIDASE BETA
     Dosage: UNK
     Route: 041
  3. INSULIN [Concomitant]
     Active Substance: INSULIN NOS
     Indication: TYPE 1 DIABETES MELLITUS
     Dosage: UNK
     Route: 048
     Dates: start: 20170606

REACTIONS (2)
  - Exposure during pregnancy [Unknown]
  - Proteinuria [Unknown]
